FAERS Safety Report 7441977-X (Version None)
Quarter: 2011Q2

REPORT INFORMATION
  Report Type: 
  Country: None (occurrence: None)
  Receive Date: 20110428
  Receipt Date: 20101117
  Transmission Date: 20111010
  Serious: No
  Sender: FDA-Public Use
  Company Number: US-ASTRAZENECA-2010SE54932

PATIENT
  Age: 47 Year
  Sex: Female
  Weight: 95.3 kg

DRUGS (14)
  1. MORPHINE [Concomitant]
  2. LIPITOR [Concomitant]
  3. ACTOS [Concomitant]
  4. ANAFRANIL [Concomitant]
  5. LYRICA [Concomitant]
  6. ZOMIG [Suspect]
     Indication: MIGRAINE
     Route: 045
     Dates: start: 20050101, end: 20101001
  7. INDERAL [Concomitant]
  8. GLYBURIDE [Concomitant]
  9. METFORMIN [Concomitant]
  10. NEXIUM [Concomitant]
  11. VICODIN [Concomitant]
  12. KLONOPIN [Concomitant]
  13. ZOMIG [Suspect]
     Route: 048
  14. ATENOLOL [Concomitant]

REACTIONS (3)
  - CHEST DISCOMFORT [None]
  - OSTEOPOROSIS [None]
  - DIABETES MELLITUS [None]
